FAERS Safety Report 9970225 (Version 1)
Quarter: 2014Q1

REPORT INFORMATION
  Report Type: Spontaneous
  Country: US (occurrence: US)
  Receive Date: 20140306
  Receipt Date: 20140306
  Transmission Date: 20141002
  Serious: No
  Sender: FDA-Public Use
  Company Number: US-BAYER-2014-034336

PATIENT
  Age: 44 Year
  Sex: Female
  Weight: 58.96 kg

DRUGS (3)
  1. ALEVE TABLET [Suspect]
     Dosage: 2 DF, OTHER FREQUENCY
     Route: 048
     Dates: start: 20140302
  2. ALEVE TABLET [Suspect]
     Dosage: 6 DF, IN 14 HOURS
     Route: 048
     Dates: start: 20140302
  3. HYDROXYZINE [Concomitant]

REACTIONS (1)
  - Extra dose administered [None]
